FAERS Safety Report 12195220 (Version 11)
Quarter: 2018Q2

REPORT INFORMATION
  Report Type: Report from Study
  Country: DE (occurrence: DE)
  Receive Date: 20160321
  Receipt Date: 20180419
  Transmission Date: 20180711
  Serious: Yes (Hospitalization, Other)
  Sender: FDA-Public Use
  Company Number: DE-JNJFOC-20160318440

PATIENT
  Age: 35 Year
  Sex: Male
  Weight: 72.6 kg

DRUGS (8)
  1. BUDENOFALK [Concomitant]
     Active Substance: BUDESONIDE
     Route: 065
  2. COTRIM FORTE [Concomitant]
     Active Substance: SULFAMETHOXAZOLE\TRIMETHOPRIM
     Dosage: TOTAL 1920 MG ONCE A DAY.
     Route: 065
  3. PANTOPRAZOLE [Concomitant]
     Active Substance: PANTOPRAZOLE
     Route: 065
  4. SIMPONI [Suspect]
     Active Substance: GOLIMUMAB
     Indication: COLITIS ULCERATIVE
     Route: 058
     Dates: start: 20151204
  5. SIMPONI [Suspect]
     Active Substance: GOLIMUMAB
     Indication: COLITIS ULCERATIVE
     Dosage: 16-DEC-2015 : SECOND DOSE OF GOLIMUMAB.
     Route: 058
     Dates: end: 20161014
  6. PREDNISOLONE. [Suspect]
     Active Substance: PREDNISOLONE
     Indication: PRODUCT USED FOR UNKNOWN INDICATION
     Route: 065
  7. PREDNISOLONE. [Suspect]
     Active Substance: PREDNISOLONE
     Indication: PRODUCT USED FOR UNKNOWN INDICATION
     Route: 065
  8. AZATHIOPRIN [Concomitant]
     Active Substance: AZATHIOPRINE
     Dosage: TOTAL DOSE: 150 MG ONCE A DAY
     Route: 065

REACTIONS (14)
  - Hypokalaemia [Recovered/Resolved]
  - Nausea [Recovering/Resolving]
  - Colitis ulcerative [Recovered/Resolved]
  - Weight decreased [Unknown]
  - Decreased appetite [Recovering/Resolving]
  - Cytomegalovirus colitis [Recovered/Resolved]
  - Aphthous ulcer [Recovered/Resolved]
  - Folliculitis [Recovered/Resolved]
  - Relapsing fever [Recovering/Resolving]
  - Venous thrombosis [Recovered/Resolved]
  - Overdose [Unknown]
  - Drug ineffective [Unknown]
  - Hepatic steatosis [Recovered/Resolved]
  - Oral candidiasis [Recovered/Resolved]

NARRATIVE: CASE EVENT DATE: 20151217
